FAERS Safety Report 12226690 (Version 1)
Quarter: 2016Q1

REPORT INFORMATION
  Report Type: Spontaneous
  Country: BR (occurrence: BR)
  Receive Date: 20160331
  Receipt Date: 20160331
  Transmission Date: 20160526
  Serious: Yes (Other)
  Sender: FDA-Public Use
  Company Number: BR-BAYER-2016-059299

PATIENT
  Age: 29 Year
  Sex: Female

DRUGS (1)
  1. QLAIRA [Suspect]
     Active Substance: DIENOGEST\ESTRADIOL VALERATE
     Indication: CONTRACEPTION
     Dosage: 1 DF, QD
     Route: 048
     Dates: start: 20121212, end: 20160327

REACTIONS (3)
  - Vulvovaginitis [Recovered/Resolved]
  - Vulvovaginal candidiasis [Recovered/Resolved]
  - Vulvovaginal burning sensation [Not Recovered/Not Resolved]
